FAERS Safety Report 23749626 (Version 1)
Quarter: 2024Q2

REPORT INFORMATION
  Report Type: Spontaneous
  Country: US (occurrence: US)
  Receive Date: 20240416
  Receipt Date: 20240416
  Transmission Date: 20240716
  Serious: No
  Sender: FDA-Public Use
  Company Number: US-SANDOZ-SDZ2024US038994

PATIENT

DRUGS (8)
  1. FOCALIN [Suspect]
     Active Substance: DEXMETHYLPHENIDATE HYDROCHLORIDE
     Indication: Product used for unknown indication
     Dosage: STRENGTH 10 MG
     Route: 065
  2. FOCALIN [Suspect]
     Active Substance: DEXMETHYLPHENIDATE HYDROCHLORIDE
     Dosage: STRENGTH 2.5 MG
     Route: 065
  3. FOCALIN [Suspect]
     Active Substance: DEXMETHYLPHENIDATE HYDROCHLORIDE
     Dosage: STRENGTH 5 MG
     Route: 065
  4. METHYLPHENIDATE HYDROCHLORIDE [Suspect]
     Active Substance: METHYLPHENIDATE HYDROCHLORIDE
     Indication: Product used for unknown indication
     Dosage: STRENGTH 20 MG
     Route: 065
  5. METHYLPHENIDATE HYDROCHLORIDE [Suspect]
     Active Substance: METHYLPHENIDATE HYDROCHLORIDE
     Dosage: STRENGTH 10 MG
     Route: 065
  6. RITALIN [Suspect]
     Active Substance: METHYLPHENIDATE HYDROCHLORIDE
     Indication: Product used for unknown indication
     Dosage: UNK
     Route: 065
  7. RITALIN LA [Suspect]
     Active Substance: METHYLPHENIDATE HYDROCHLORIDE
     Indication: Product used for unknown indication
     Dosage: STRENGTH 20 MG
     Route: 065
  8. RITALIN LA [Suspect]
     Active Substance: METHYLPHENIDATE HYDROCHLORIDE
     Dosage: STRENGTH 10 MG
     Route: 065

REACTIONS (1)
  - Product storage error [Unknown]
